FAERS Safety Report 8390101 (Version 3)
Quarter: 2012Q4

REPORT INFORMATION
  Report Type: 
  Country: JP (occurrence: JP)
  Receive Date: 20120203
  Receipt Date: 20121129
  Transmission Date: 20130627
  Serious: Yes (Other)
  Sender: FDA-Public Use
  Company Number: JP-PFIZER INC-2012023894

PATIENT
  Age: 15 Year
  Sex: Female

DRUGS (5)
  1. METHYLPREDNISOLONE SODIUM SUCCINATE [Suspect]
     Dosage: 500 mg daily
     Route: 042
  2. METHYLPREDNISOLONE SODIUM SUCCINATE [Suspect]
     Dosage: 1 g daily
     Route: 042
  3. CICLOSPORIN [Concomitant]
  4. PLASMA, FRESH FROZEN [Concomitant]
     Indication: COAGULOPATHY
  5. FUROSEMIDE [Concomitant]
     Indication: COAGULOPATHY

REACTIONS (1)
  - Atrial fibrillation [Recovered/Resolved]
